FAERS Safety Report 23753507 (Version 1)
Quarter: 2024Q2

REPORT INFORMATION
  Report Type: Spontaneous
  Country: US (occurrence: None)
  Receive Date: 20240417
  Receipt Date: 20240417
  Transmission Date: 20240716
  Serious: No
  Sender: FDA-Public Use
  Company Number: None

PATIENT
  Age: 21 Day
  Sex: Female

DRUGS (1)
  1. NIRSEVIMAB [Suspect]
     Active Substance: NIRSEVIMAB
     Dosage: OTHER FREQUENCY : ONCE;?
     Route: 030
     Dates: start: 20231129

REACTIONS (2)
  - Apnoea [None]
  - Bradycardia [None]

NARRATIVE: CASE EVENT DATE: 20231201
